FAERS Safety Report 5555712-3 (Version None)
Quarter: 2007Q4

REPORT INFORMATION
  Report Type: 
  Country: None (occurrence: None)
  Receive Date: 20071213
  Receipt Date: 20071205
  Transmission Date: 20080405
  Serious: Yes (Other)
  Sender: FDA-Public Use
  Company Number: US-PFIZER INC-2007077868

PATIENT
  Sex: Male

DRUGS (1)
  1. EXUBERA [Suspect]
     Route: 055

REACTIONS (1)
  - SHOCK [None]
